FAERS Safety Report 17410861 (Version 1)
Quarter: 2020Q1

REPORT INFORMATION
  Report Type: Spontaneous
  Country: CN (occurrence: CN)
  Receive Date: 20200212
  Receipt Date: 20200212
  Transmission Date: 20200409
  Serious: Yes (Other)
  Sender: FDA-Public Use
  Company Number: CN-B.I. PHARMACEUTICALS,INC./RIDGEFIELD-2020-BI-006939

PATIENT
  Age: 85 Year
  Sex: Female

DRUGS (2)
  1. SIFROL [Suspect]
     Active Substance: PRAMIPEXOLE
     Indication: PARKINSON^S DISEASE
     Dosage: LONG-TERM ADMINISTRATION OF PRAMIPEXOLE PLAIN TABLETS, AND WAS PRESCRIBED SUSTAIN RELEASE TABLET
     Route: 048
     Dates: start: 20190915, end: 20190929
  2. SIFROL [Suspect]
     Active Substance: PRAMIPEXOLE
     Dosage: PLAIN TABLET
     Route: 065
     Dates: start: 20190930

REACTIONS (2)
  - Altered state of consciousness [Recovering/Resolving]
  - Somnolence [Recovering/Resolving]

NARRATIVE: CASE EVENT DATE: 20190929
